FAERS Safety Report 9054876 (Version 2)
Quarter: 2013Q1

REPORT INFORMATION
  Report Type: Spontaneous
  Country: JP (occurrence: JP)
  Receive Date: 20130208
  Receipt Date: 20130219
  Transmission Date: 20140127
  Serious: Yes (Hospitalization)
  Sender: FDA-Public Use
  Company Number: JP-PFIZER INC-2013032724

PATIENT
  Age: 13 Year
  Sex: Male

DRUGS (3)
  1. GENOTROPIN TC [Suspect]
     Indication: GROWTH HORMONE DEFICIENCY
     Dosage: 0.6 MG, 1X/DAY, 7 TIMES WEEKLY
     Route: 058
     Dates: start: 20110318, end: 20110812
  2. GENOTROPIN TC [Suspect]
     Dosage: 0.75 MG, 1X/DAY, 6 TIMES WEEKLY
     Route: 058
     Dates: start: 20110813, end: 20120321
  3. GENOTROPIN TC [Suspect]
     Dosage: 0.9 MG, 1X/DAY, 6 TIMES WEEKLY
     Route: 058
     Dates: start: 20120322, end: 20121127

REACTIONS (1)
  - Chronic myeloid leukaemia [Unknown]
